FAERS Safety Report 12821170 (Version 2)
Quarter: 2016Q4

REPORT INFORMATION
  Report Type: Report from Study
  Country: US (occurrence: US)
  Receive Date: 20161007
  Receipt Date: 20161014
  Transmission Date: 20170207
  Serious: Yes (Hospitalization)
  Sender: FDA-Public Use
  Company Number: US-JNJFOC-20161002401

PATIENT
  Age: 24 Year
  Sex: Female
  Weight: 81 kg

DRUGS (4)
  1. CANAGLIFLOZIN [Suspect]
     Active Substance: CANAGLIFLOZIN
     Indication: TYPE 2 DIABETES MELLITUS
     Route: 048
     Dates: start: 20160916, end: 20160916
  2. CANAGLIFLOZIN/METFORMIN [Suspect]
     Active Substance: CANAGLIFLOZIN\METFORMIN HYDROCHLORIDE
     Route: 048
  3. CANAGLIFLOZIN/METFORMIN [Suspect]
     Active Substance: CANAGLIFLOZIN\METFORMIN HYDROCHLORIDE
     Indication: TYPE 2 DIABETES MELLITUS
     Dosage: DOSE: 50/500 MG
     Route: 048
     Dates: start: 20160909, end: 20160909
  4. GLUMETZA [Suspect]
     Active Substance: METFORMIN HYDROCHLORIDE
     Indication: TYPE 2 DIABETES MELLITUS
     Route: 048
     Dates: start: 20160916, end: 20160916

REACTIONS (10)
  - Alanine aminotransferase increased [None]
  - Vomiting [None]
  - Flatulence [None]
  - Calculus bladder [None]
  - Ultrasound abdomen abnormal [None]
  - Nausea [None]
  - Abdominal pain [Recovering/Resolving]
  - Aspartate aminotransferase increased [None]
  - Abdominal pain upper [None]
  - Cholecystitis [None]

NARRATIVE: CASE EVENT DATE: 20161001
